FAERS Safety Report 4815957-4 (Version None)
Quarter: 2005Q4

REPORT INFORMATION
  Report Type: 
  Country: None (occurrence: None)
  Receive Date: 20051031
  Receipt Date: 20050725
  Transmission Date: 20060501
  Serious: Yes (Hospitalization)
  Sender: FDA-Public Use
  Company Number: FR-ROCHE-411772

PATIENT
  Age: 56 Year
  Sex: Male
  Weight: 60 kg

DRUGS (10)
  1. MYCOPHENOLATE MOFETIL [Suspect]
     Route: 048
     Dates: start: 20050708
  2. MYCOPHENOLATE MOFETIL [Suspect]
     Route: 048
  3. DACLIZUMAB [Suspect]
     Route: 042
     Dates: start: 20050708, end: 20050722
  4. NEORAL [Suspect]
     Route: 048
     Dates: start: 20050708
  5. NEORAL [Suspect]
     Route: 048
  6. SOLU-MEDROL [Suspect]
     Route: 065
     Dates: start: 20050708
  7. ZELITREX [Suspect]
     Indication: DRUG USE FOR UNKNOWN INDICATION
     Route: 048
     Dates: start: 20050711
  8. BACTRIM [Concomitant]
     Dates: start: 20050712
  9. AMLOR [Concomitant]
     Route: 048
     Dates: start: 20050712
  10. MOPRAL [Concomitant]
     Route: 048
     Dates: start: 20050708

REACTIONS (8)
  - CHOLESTASIS [None]
  - CYTOLYTIC HEPATITIS [None]
  - DEVICE RELATED INFECTION [None]
  - JAUNDICE [None]
  - NOSOCOMIAL INFECTION [None]
  - PSEUDOMONAS INFECTION [None]
  - PYELONEPHRITIS [None]
  - UNEVALUABLE EVENT [None]
